FAERS Safety Report 11848895 (Version 1)
Quarter: 2015Q4

REPORT INFORMATION
  Report Type: Spontaneous
  Country: US (occurrence: None)
  Receive Date: 20151217
  Receipt Date: 20151217
  Transmission Date: 20160305
  Serious: Yes (Other)
  Sender: FDA-Public Use
  Company Number: None

PATIENT
  Age: 60 Year
  Sex: Female

DRUGS (12)
  1. CALCIUM [Concomitant]
     Active Substance: CALCIUM
  2. TOVIAZ [Concomitant]
     Active Substance: FESOTERODINE FUMARATE
  3. IBUPROFEN. [Concomitant]
     Active Substance: IBUPROFEN
  4. PROAIR HFA [Concomitant]
     Active Substance: ALBUTEROL SULFATE
  5. TASIGNA [Suspect]
     Active Substance: NILOTINIB
     Indication: CHRONIC MYELOID LEUKAEMIA
     Route: 048
     Dates: start: 20151113
  6. ASPIRIN. [Concomitant]
     Active Substance: ASPIRIN
  7. CYCLOBENZAPRINE [Concomitant]
     Active Substance: CYCLOBENZAPRINE
  8. OXYCODONE [Concomitant]
     Active Substance: OXYCODONE
  9. ONDANSETRON [Concomitant]
     Active Substance: ONDANSETRON
  10. PROMETHAZONE [Concomitant]
  11. DIOVAN [Concomitant]
     Active Substance: VALSARTAN
  12. DIOVAN [Concomitant]
     Active Substance: VALSARTAN

REACTIONS (9)
  - Fall [None]
  - Cough [None]
  - Drug dose omission [None]
  - Asthenia [None]
  - Dysstasia [None]
  - Dizziness [None]
  - Fear [None]
  - Nervousness [None]
  - Vomiting [None]

NARRATIVE: CASE EVENT DATE: 201511
